FAERS Safety Report 10176208 (Version 4)
Quarter: 2014Q2

REPORT INFORMATION
  Report Type: Spontaneous
  Country: US (occurrence: US)
  Receive Date: 20140516
  Receipt Date: 20140619
  Transmission Date: 20141212
  Serious: Yes (Hospitalization, Other)
  Sender: FDA-Public Use
  Company Number: US-JNJFOC-20140506394

PATIENT
  Age: 17 Year
  Sex: Female
  Weight: 73.8 kg

DRUGS (9)
  1. REMICADE [Suspect]
     Indication: COLITIS ULCERATIVE
     Dosage: APPROXIMATE NUMBER OF INFUSION WAS 9
     Route: 042
     Dates: start: 20130627
  2. REMICADE [Suspect]
     Indication: COLITIS ULCERATIVE
     Dosage: APPROXIMATE NUMBER OF INFUSION WAS 9
     Route: 042
     Dates: start: 201403, end: 20140508
  3. REMICADE [Suspect]
     Indication: CROHN^S DISEASE
     Dosage: APPROXIMATE NUMBER OF INFUSION WAS 9
     Route: 042
     Dates: start: 201403, end: 20140508
  4. REMICADE [Suspect]
     Indication: CROHN^S DISEASE
     Dosage: APPROXIMATE NUMBER OF INFUSION WAS 9
     Route: 042
     Dates: start: 20130627
  5. REMICADE [Suspect]
     Indication: INFLAMMATORY BOWEL DISEASE
     Dosage: APPROXIMATE NUMBER OF INFUSION WAS 9
     Route: 042
     Dates: start: 201403, end: 20140508
  6. REMICADE [Suspect]
     Indication: INFLAMMATORY BOWEL DISEASE
     Dosage: APPROXIMATE NUMBER OF INFUSION WAS 9
     Route: 042
     Dates: start: 20130627
  7. AZATHIOPRINE [Suspect]
     Indication: INFLAMMATORY BOWEL DISEASE
     Dosage: 3 1/2 TABLETS
     Route: 065
     Dates: start: 201402, end: 201405
  8. AZATHIOPRINE [Suspect]
     Indication: INFLAMMATORY BOWEL DISEASE
     Dosage: 3 1/2 TABLETS
     Route: 065
     Dates: start: 201303, end: 201306
  9. MESALAMINE [Suspect]
     Indication: PRODUCT USED FOR UNKNOWN INDICATION
     Route: 065

REACTIONS (6)
  - Hodgkin^s disease [Not Recovered/Not Resolved]
  - Epstein-Barr virus infection [Recovered/Resolved with Sequelae]
  - Neutropenia [Unknown]
  - Vision blurred [Unknown]
  - Breast discharge [Unknown]
  - Arthralgia [Unknown]
